FAERS Safety Report 23747497 (Version 1)
Quarter: 2024Q2

REPORT INFORMATION
  Report Type: Spontaneous
  Country: BG (occurrence: BG)
  Receive Date: 20240416
  Receipt Date: 20240416
  Transmission Date: 20240716
  Serious: Yes (Other)
  Sender: FDA-Public Use
  Company Number: BG-BoehringerIngelheim-2024-BI-021007

PATIENT
  Age: 88 Year
  Sex: Male

DRUGS (7)
  1. PRADAXA [Suspect]
     Active Substance: DABIGATRAN ETEXILATE MESYLATE
     Indication: Atrial fibrillation
  2. Amiodarone  200 mg [Concomitant]
     Indication: Product used for unknown indication
     Dosage: IN THE MORNING
  3. Torasemid  200 mg [Concomitant]
     Indication: Product used for unknown indication
     Dosage: FIRST DAY- HALF TABLET IN THE MORNING; NEXT DAY- A TABLET IN THE MORNING, ETC.
  4. Spironolacton  50 mg [Concomitant]
     Indication: Product used for unknown indication
     Dosage: A TABLET IN THE MORNING
  5. Trimetazidin  35 mg [Concomitant]
     Indication: Product used for unknown indication
  6. ROSUVASTATIN [Concomitant]
     Active Substance: ROSUVASTATIN
     Indication: Product used for unknown indication
  7. Tamsudil  0.4 mg [Concomitant]
     Indication: Product used for unknown indication

REACTIONS (5)
  - Oedema peripheral [Recovering/Resolving]
  - Fatigue [Recovering/Resolving]
  - Dyspnoea [Recovering/Resolving]
  - Dyspnoea paroxysmal nocturnal [Recovering/Resolving]
  - Middle insomnia [Recovering/Resolving]

NARRATIVE: CASE EVENT DATE: 20211101
